FAERS Safety Report 8111423-1 (Version None)
Quarter: 2012Q1

REPORT INFORMATION
  Report Type: 
  Country: None (occurrence: None)
  Receive Date: 20120203
  Receipt Date: 20111129
  Transmission Date: 20120608
  Serious: No
  Sender: FDA-Public Use
  Company Number: US-GLAXOSMITHKLINE-A0955780A

PATIENT
  Age: 34 Year
  Sex: Male

DRUGS (2)
  1. LAMOTRIGINE [Suspect]
     Indication: BIPOLAR DISORDER
     Dosage: 200MG PER DAY
     Route: 048
     Dates: start: 20110801
  2. NO CONCURRENT MEDICATION [Concomitant]

REACTIONS (3)
  - DERMATITIS ACNEIFORM [None]
  - STAPHYLOCOCCAL INFECTION [None]
  - PRURITUS [None]
